FAERS Safety Report 8370685-6 (Version None)
Quarter: 2012Q1

REPORT INFORMATION
  Report Type: 
  Country: None (occurrence: None)
  Receive Date: 20120323
  Receipt Date: 20110923
  Transmission Date: 20120608
  Serious: Yes (Hospitalization)
  Sender: FDA-Public Use
  Company Number: 163-21880-11092921

PATIENT
  Age: 51 Year
  Sex: Male
  Weight: 98.4306 kg

DRUGS (26)
  1. LEXAPRO [Concomitant]
  2. ACYCLOVIR [Concomitant]
  3. LASIX [Concomitant]
  4. MULTI-VITAMINS [Concomitant]
  5. RAPAFLO (SILODOSIN) [Concomitant]
  6. ADDERALL (OBETROL) [Concomitant]
  7. RANITIDINE [Concomitant]
  8. ALBUTEROL [Concomitant]
  9. PRILOSEC [Concomitant]
  10. OXYCODONE HCL [Concomitant]
  11. POTASSIUM CHLORIDE [Concomitant]
  12. REVLIMID [Suspect]
     Indication: MULTIPLE MYELOMA
     Dosage: 25 MG, 5 IN 1 D, PO  : 25 MG, QD, X 28 DAYS, PO
     Route: 048
     Dates: start: 20101001
  13. REVLIMID [Suspect]
     Indication: MULTIPLE MYELOMA
     Dosage: 25 MG, 5 IN 1 D, PO  : 25 MG, QD, X 28 DAYS, PO
     Route: 048
     Dates: start: 20081101
  14. CIALIS [Concomitant]
  15. CIPRO [Concomitant]
  16. PROAIR (FLUTICASONE PROPIONATE) [Concomitant]
  17. GABAPENTIN [Concomitant]
  18. OXYCONTIN [Concomitant]
  19. LEVAQUIN [Concomitant]
  20. ZYRTEC [Concomitant]
  21. TESTOSTERONE [Concomitant]
  22. ASTELIN [Concomitant]
  23. DEXAMETHASONE [Concomitant]
  24. NEURONTIN [Concomitant]
  25. AVODART [Concomitant]
  26. LEVOXYL [Concomitant]

REACTIONS (2)
  - BODY HEIGHT DECREASED [None]
  - THROMBOSIS [None]
